FAERS Safety Report 15429355 (Version 1)
Quarter: 2018Q3

REPORT INFORMATION
  Report Type: Spontaneous
  Country: DE (occurrence: DE)
  Receive Date: 20180926
  Receipt Date: 20180926
  Transmission Date: 20181010
  Serious: Yes (Other)
  Sender: FDA-Public Use
  Company Number: DE-TORRENT-00010305

PATIENT
  Age: 29 Year
  Sex: Female

DRUGS (2)
  1. VENLAFAXINE [Suspect]
     Active Substance: VENLAFAXINE HYDROCHLORIDE
     Indication: DEPRESSION
     Dosage: UNKNOWN
     Route: 048
     Dates: start: 201705
  2. RISPERIDON [Concomitant]
     Active Substance: RISPERIDONE
     Indication: DEREALISATION
     Dosage: UNKNOWN
     Route: 048
     Dates: start: 201705

REACTIONS (1)
  - Pathological fracture [Recovering/Resolving]

NARRATIVE: CASE EVENT DATE: 201807
